FAERS Safety Report 4792510-2 (Version None)
Quarter: 2005Q4

REPORT INFORMATION
  Report Type: 
  Country: None (occurrence: None)
  Receive Date: 20051010
  Receipt Date: 20050926
  Transmission Date: 20060501
  Serious: Yes (Death, Life-Threatening)
  Sender: FDA-Public Use
  Company Number: JP-JNJFOC-20050704140

PATIENT
  Sex: Male

DRUGS (11)
  1. RISPERDAL [Suspect]
     Route: 048
  2. RISPERDAL [Suspect]
     Route: 048
  3. RISPERDAL [Suspect]
     Route: 048
  4. RISPERDAL [Suspect]
     Route: 048
  5. RISPERDAL [Suspect]
     Route: 048
  6. HALDOL [Suspect]
     Dosage: ^2 DOSAGE FORM PER DAY^
  7. LEVOMEPROMAZINE MALEATE [Concomitant]
     Route: 048
  8. LEVOMEPROMAZINE MALEATE [Concomitant]
     Route: 048
  9. LEVOMEPROMAZINE MALEATE [Concomitant]
     Route: 048
  10. LEVOMEPROMAZINE MALEATE [Concomitant]
     Indication: VITAMIN B12 DEFICIENCY
     Route: 030
  11. FLUNITRAZEPAM [Concomitant]
     Route: 048

REACTIONS (9)
  - ARRHYTHMIA [None]
  - ATRIAL FIBRILLATION [None]
  - BRAIN HERNIATION [None]
  - CEREBRAL ARTERY OCCLUSION [None]
  - CEREBRAL INFARCTION [None]
  - FIBRIN D DIMER INCREASED [None]
  - GAZE PALSY [None]
  - MANIA [None]
  - RESPIRATORY DISORDER [None]
